FAERS Safety Report 23157044 (Version 1)
Quarter: 2023Q4

REPORT INFORMATION
  Report Type: Spontaneous
  Country: PL (occurrence: PL)
  Receive Date: 20231108
  Receipt Date: 20231108
  Transmission Date: 20240110
  Serious: Yes (Other)
  Sender: FDA-Public Use
  Company Number: PL-INCYTE CORPORATION-2023IN011399

PATIENT

DRUGS (1)
  1. TAFASITAMAB [Suspect]
     Active Substance: TAFASITAMAB
     Indication: Diffuse large B-cell lymphoma
     Dosage: 12 MILLIGRAM/KILOGRAM, SINGLE DOSE
     Route: 042
     Dates: start: 20231020, end: 20231020

REACTIONS (3)
  - Cardiac fibrillation [Unknown]
  - Cardiovascular disorder [Unknown]
  - Oedema [Unknown]
